FAERS Safety Report 13616457 (Version 1)
Quarter: 2017Q2

REPORT INFORMATION
  Report Type: Spontaneous
  Country: US (occurrence: US)
  Receive Date: 20170606
  Receipt Date: 20170606
  Transmission Date: 20170830
  Serious: No
  Sender: FDA-Public Use
  Company Number: None

PATIENT
  Sex: Female
  Weight: 103.5 kg

DRUGS (1)
  1. METROPROL TARTRATE [Suspect]
     Active Substance: METOPROLOL TARTRATE

REACTIONS (1)
  - Alopecia [None]
